FAERS Safety Report 19722780 (Version 1)
Quarter: 2021Q3

REPORT INFORMATION
  Report Type: Spontaneous
  Country: FR (occurrence: FR)
  Receive Date: 20210819
  Receipt Date: 20210819
  Transmission Date: 20211014
  Serious: Yes (Other)
  Sender: FDA-Public Use
  Company Number: FR-MYLANLABS-2021M1052209

PATIENT
  Age: 71 Year
  Sex: Female

DRUGS (1)
  1. OLANZAPINE MYLAN [Suspect]
     Active Substance: OLANZAPINE
     Indication: BIPOLAR DISORDER
     Dosage: 10 MILLIGRAM, QD
     Route: 048
     Dates: start: 20201117, end: 20201211

REACTIONS (2)
  - Fall [Recovered/Resolved]
  - Akinesia [Recovered/Resolved]

NARRATIVE: CASE EVENT DATE: 20201211
